FAERS Safety Report 5381223-4 (Version None)
Quarter: 2007Q3

REPORT INFORMATION
  Report Type: 
  Country: None (occurrence: None)
  Receive Date: 20070706
  Receipt Date: 20070625
  Transmission Date: 20080115
  Serious: Yes (Other)
  Sender: FDA-Public Use
  Company Number: FR-PFIZER INC-2007053575

PATIENT
  Sex: Female

DRUGS (5)
  1. CHAMPIX [Suspect]
     Indication: SMOKING CESSATION THERAPY
  2. DEPAKOTE [Concomitant]
  3. ANTIDEPRESSANTS [Concomitant]
  4. BENZODIAZEPINE DERIVATIVES [Concomitant]
  5. ALL OTHER THERAPEUTIC PRODUCTS [Concomitant]

REACTIONS (3)
  - ALCOHOL USE [None]
  - MANIA [None]
  - SMOKER [None]
